FAERS Safety Report 10668210 (Version 1)
Quarter: 2014Q4

REPORT INFORMATION
  Report Type: Spontaneous
  Country: US (occurrence: US)
  Receive Date: 20141222
  Receipt Date: 20141222
  Transmission Date: 20150529
  Serious: No
  Sender: FDA-Public Use
  Company Number: US-GLAXOSMITHKLINE-A1070480A

PATIENT

DRUGS (9)
  1. METOPROLOL [Concomitant]
     Active Substance: METOPROLOL
  2. ZETIA [Concomitant]
     Active Substance: EZETIMIBE
  3. ATORVASTATIN [Concomitant]
     Active Substance: ATORVASTATIN
  4. LYRICA [Concomitant]
     Active Substance: PREGABALIN
  5. AVODART [Suspect]
     Active Substance: DUTASTERIDE
     Indication: BENIGN PROSTATIC HYPERPLASIA
     Route: 048
  6. FUROSEMID [Concomitant]
     Active Substance: FUROSEMIDE
  7. ISOSORBIDE [Concomitant]
     Active Substance: ISOSORBIDE
  8. SPIRONOLACTONE. [Concomitant]
     Active Substance: SPIRONOLACTONE
  9. ASACOL [Concomitant]
     Active Substance: MESALAMINE

REACTIONS (2)
  - Alopecia [Unknown]
  - Dysuria [Unknown]
